FAERS Safety Report 7077764-4 (Version None)
Quarter: 2010Q4

REPORT INFORMATION
  Report Type: 
  Country: None (occurrence: None)
  Receive Date: 20101101
  Receipt Date: 20101019
  Transmission Date: 20110411
  Serious: Yes (Other)
  Sender: FDA-Public Use
  Company Number: PHHY2010US70139

PATIENT
  Sex: Female

DRUGS (1)
  1. LOTREL [Suspect]
     Dosage: UNK

REACTIONS (3)
  - ERYTHEMA ANNULARE [None]
  - INTERSTITIAL GRANULOMATOUS DERMATITIS [None]
  - PAPULE [None]
